FAERS Safety Report 25386861 (Version 1)
Quarter: 2025Q2

REPORT INFORMATION
  Report Type: Spontaneous
  Country: HR (occurrence: HR)
  Receive Date: 20250602
  Receipt Date: 20250602
  Transmission Date: 20250716
  Serious: Yes (Other)
  Sender: NOVARTIS
  Company Number: HR-002147023-NVSC2025HR087644

PATIENT
  Sex: Female

DRUGS (1)
  1. LEQVIO [Suspect]
     Active Substance: INCLISIRAN SODIUM
     Indication: Dyslipidaemia
     Route: 065
     Dates: start: 20240109

REACTIONS (9)
  - Renal impairment [Recovering/Resolving]
  - Pain in extremity [Unknown]
  - Hypertension [Recovered/Resolved]
  - Weight increased [Unknown]
  - Blood glucose increased [Recovered/Resolved]
  - Diarrhoea [Recovered/Resolved]
  - Obstructive sleep apnoea syndrome [Unknown]
  - Peripheral arterial occlusive disease [Not Recovered/Not Resolved]
  - Body mass index increased [Unknown]

NARRATIVE: CASE EVENT DATE: 20240409
